FAERS Safety Report 8795035 (Version 2)
Quarter: 2015Q2

REPORT INFORMATION
  Report Type: Report from Study
  Country: US (occurrence: US)
  Receive Date: 20120917
  Receipt Date: 20150402
  Transmission Date: 20150821
  Serious: Yes (Death, Other)
  Sender: FDA-Public Use
  Company Number: US-ROCHE-1128577

PATIENT
  Sex: Female
  Weight: 63 kg

DRUGS (8)
  1. AVASTIN [Suspect]
     Active Substance: BEVACIZUMAB
     Indication: BREAST CANCER FEMALE
     Route: 042
     Dates: start: 20051115
  2. LASIX [Concomitant]
     Active Substance: FUROSEMIDE
     Route: 048
  3. XELODA [Suspect]
     Active Substance: CAPECITABINE
     Indication: PRODUCT USED FOR UNKNOWN INDICATION
     Route: 048
  4. COLCHICINE. [Concomitant]
     Active Substance: COLCHICINE
  5. ZYLOPRIM [Concomitant]
     Active Substance: ALLOPURINOL
  6. AVASTIN [Suspect]
     Active Substance: BEVACIZUMAB
     Route: 042
  7. FEMARA [Concomitant]
     Active Substance: LETROZOLE
     Route: 065
  8. ARANESP [Concomitant]
     Active Substance: DARBEPOETIN ALFA
     Route: 065

REACTIONS (21)
  - Back pain [Unknown]
  - Neuropathy peripheral [Unknown]
  - Renal failure [Unknown]
  - Glossodynia [Unknown]
  - Neck pain [Unknown]
  - Diarrhoea [Unknown]
  - Cardiac disorder [Unknown]
  - Off label use [Unknown]
  - Decreased appetite [Unknown]
  - Dizziness [Unknown]
  - Malnutrition [Unknown]
  - Diverticulum intestinal [Unknown]
  - Eye pruritus [Unknown]
  - Fatigue [Unknown]
  - Mucosal inflammation [Unknown]
  - Dyspnoea [Unknown]
  - Gout [Unknown]
  - Asthenia [Unknown]
  - Insomnia [Unknown]
  - Thrombocytopenia [Unknown]
  - Death [Fatal]
